FAERS Safety Report 9640370 (Version 3)
Quarter: 2013Q4

REPORT INFORMATION
  Report Type: Spontaneous
  Country: JP (occurrence: JP)
  Receive Date: 20131023
  Receipt Date: 20131202
  Transmission Date: 20140711
  Serious: Yes (Hospitalization, Disabling, Other)
  Sender: FDA-Public Use
  Company Number: JP-009507513-1310JPN008291

PATIENT
  Age: 40 Year
  Sex: Male

DRUGS (5)
  1. PROPECIA TABLETS 0.2MG [Suspect]
     Dosage: 0.2 MG, 1 DAY
     Route: 048
     Dates: start: 20120927, end: 201301
  2. PROPECIA TABLETS 0.2MG [Suspect]
     Dosage: 0.2 MG, QD
     Route: 048
     Dates: start: 20130228, end: 201304
  3. MAGMITT [Concomitant]
     Indication: CONSTIPATION
     Dosage: 330 MG, TID
     Route: 048
     Dates: start: 20130927
  4. BERBERON [Concomitant]
     Indication: CONSTIPATION
     Dosage: 20 GTT, DIVIDED DOSE FREQUENCY U
     Route: 048
     Dates: start: 20130927
  5. SENNAL [Concomitant]
     Indication: CONSTIPATION
     Dosage: 12 MG, BID
     Route: 048
     Dates: start: 20130927

REACTIONS (14)
  - Hyperventilation [Recovering/Resolving]
  - Suicidal ideation [Recovering/Resolving]
  - Male genital atrophy [Not Recovered/Not Resolved]
  - Depression [Unknown]
  - Erectile dysfunction [Not Recovered/Not Resolved]
  - Penile pain [Not Recovered/Not Resolved]
  - Cholelithiasis [Not Recovered/Not Resolved]
  - Decreased appetite [Not Recovered/Not Resolved]
  - Blood pressure increased [Recovered/Resolved]
  - Hepatic steatosis [Not Recovered/Not Resolved]
  - Urinary incontinence [Not Recovered/Not Resolved]
  - Faecal incontinence [Not Recovered/Not Resolved]
  - Weight decreased [Unknown]
  - Hepatic function abnormal [Recovered/Resolved]
